FAERS Safety Report 6687704-5 (Version None)
Quarter: 2010Q2

REPORT INFORMATION
  Report Type: 
  Country: None (occurrence: None)
  Receive Date: 20100420
  Receipt Date: 20100412
  Transmission Date: 20101027
  Serious: Yes (Death, Other)
  Sender: FDA-Public Use
  Company Number: US-ASTRAZENECA-2008UW07381

PATIENT
  Sex: Female

DRUGS (4)
  1. SEROQUEL [Suspect]
     Dosage: 200 MG TO 600 MG
     Route: 048
     Dates: start: 20050804
  2. KLONOPIN [Concomitant]
     Route: 048
     Dates: start: 20050825
  3. LEXAPRO [Concomitant]
     Route: 048
     Dates: start: 20060802
  4. ABILIFY [Concomitant]
     Route: 048
     Dates: start: 20060802

REACTIONS (4)
  - DIABETES MELLITUS [None]
  - DIABETIC KETOACIDOSIS [None]
  - SEPTIC SHOCK [None]
  - TYPE 2 DIABETES MELLITUS [None]
